FAERS Safety Report 4337642-8 (Version None)
Quarter: 2004Q2

REPORT INFORMATION
  Report Type: 
  Country: None (occurrence: None)
  Receive Date: 20040408
  Receipt Date: 20040331
  Transmission Date: 20050107
  Serious: Yes (Hospitalization)
  Sender: FDA-Public Use
  Company Number: 2004SE01664

PATIENT
  Age: 59 Year
  Sex: Female
  Weight: 50 kg

DRUGS (3)
  1. TCV-116 (MEDICATION) [Suspect]
     Indication: ESSENTIAL HYPERTENSION
     Dosage: 12 MG OR 16 MG
     Dates: start: 20030921, end: 20031115
  2. TCV-116 (MEDICATION) [Suspect]
     Indication: ESSENTIAL HYPERTENSION
     Dosage: 16 MG OR 32 MG
     Dates: start: 20031116, end: 20040110
  3. TCV-116 (PREMEDICATION) [Suspect]
     Indication: ESSENTIAL HYPERTENSION
     Dosage: 8 MG QD PO
     Route: 048
     Dates: start: 20030728, end: 20030920

REACTIONS (3)
  - CEREBRAL INFARCTION [None]
  - CIRCULATORY COLLAPSE [None]
  - HEMIPLEGIA [None]
